FAERS Safety Report 7603248-8 (Version None)
Quarter: 2011Q3

REPORT INFORMATION
  Report Type: 
  Country: None (occurrence: None)
  Receive Date: 20110712
  Receipt Date: 20110704
  Transmission Date: 20111222
  Serious: Yes (Other)
  Sender: FDA-Public Use
  Company Number: HR-PFIZER INC-2011153230

PATIENT
  Age: 62 Year
  Sex: Female

DRUGS (10)
  1. EUTHYROX [Concomitant]
     Dosage: UNK
     Dates: start: 19980415
  2. ACETYLSALICYLIC ACID [Concomitant]
  3. FURSEMID [Concomitant]
  4. RAMIPRIL [Concomitant]
     Dosage: UNK
     Dates: start: 20070401
  5. LIPEX [Concomitant]
  6. OXAZEPAM [Concomitant]
  7. NITROLINGUAL [Concomitant]
  8. CORDARONE [Suspect]
     Indication: VENTRICULAR TACHYCARDIA
     Dosage: 200 MG, DAILY
     Route: 048
     Dates: start: 20110518, end: 20110530
  9. AMARYL [Concomitant]
     Dosage: UNK
     Dates: start: 20100422
  10. CARVEDILOL [Concomitant]

REACTIONS (3)
  - CHOKING SENSATION [None]
  - COUGH [None]
  - DYSPNOEA [None]
